FAERS Safety Report 21824309 (Version 4)
Quarter: 2023Q2

REPORT INFORMATION
  Report Type: Report from Study
  Country: ES (occurrence: ES)
  Receive Date: 20230105
  Receipt Date: 20230510
  Transmission Date: 20230722
  Serious: Yes (Hospitalization)
  Sender: FDA-Public Use
  Company Number: ES-JNJFOC-20220704980

PATIENT
  Age: 70 Year
  Sex: Female
  Weight: 63.5 kg

DRUGS (30)
  1. TECLISTAMAB [Suspect]
     Active Substance: TECLISTAMAB
     Indication: Plasma cell myeloma
     Dosage: 30 (10MG/ML) VIAL
     Route: 058
     Dates: start: 20220407, end: 20220407
  2. TECLISTAMAB [Suspect]
     Active Substance: TECLISTAMAB
     Dosage: 30 (10MG/ML) VIAL
     Route: 058
     Dates: start: 20220418, end: 20220418
  3. TECLISTAMAB [Suspect]
     Active Substance: TECLISTAMAB
     Dosage: 150 (90MG/ML) VIAL
     Route: 058
     Dates: start: 20220420, end: 20220503
  4. TECLISTAMAB [Suspect]
     Active Substance: TECLISTAMAB
     Route: 058
     Dates: start: 20220614, end: 20220614
  5. TECLISTAMAB [Suspect]
     Active Substance: TECLISTAMAB
     Route: 058
     Dates: start: 20220617, end: 20220622
  6. TECLISTAMAB [Suspect]
     Active Substance: TECLISTAMAB
     Route: 058
     Dates: start: 20220407, end: 20220614
  7. TECLISTAMAB [Suspect]
     Active Substance: TECLISTAMAB
     Route: 058
     Dates: start: 20220420, end: 20220622
  8. DARATUMUMAB [Suspect]
     Active Substance: DARATUMUMAB
     Indication: Plasma cell myeloma
     Dosage: ALSO REPORTED AS 15 ML
     Route: 058
     Dates: start: 20220406, end: 20220622
  9. DEXAMETHASONE [Concomitant]
     Active Substance: DEXAMETHASONE
     Indication: COVID-19 pneumonia
     Route: 065
     Dates: start: 20220517
  10. DEXAMETHASONE [Concomitant]
     Active Substance: DEXAMETHASONE
     Route: 065
     Dates: start: 20220608, end: 20220614
  11. DEXAMETHASONE [Concomitant]
     Active Substance: DEXAMETHASONE
     Route: 065
     Dates: start: 20220615, end: 20220618
  12. DEXAMETHASONE [Concomitant]
     Active Substance: DEXAMETHASONE
     Route: 048
     Dates: start: 20220523, end: 20220601
  13. UNSPECIFIED INGREDIENT [Concomitant]
     Active Substance: UNSPECIFIED INGREDIENT
     Indication: COVID-19 pneumonia
     Route: 065
     Dates: start: 20220517
  14. ACYCLOVIR [Concomitant]
     Active Substance: ACYCLOVIR
     Indication: Antiviral prophylaxis
     Route: 048
     Dates: start: 20220406
  15. OMEPRAZOLE [Concomitant]
     Active Substance: OMEPRAZOLE
     Indication: Gastrointestinal disorder therapy
     Route: 048
     Dates: start: 20220406
  16. FOLIC ACID [Concomitant]
     Active Substance: FOLIC ACID
     Indication: Folate deficiency
     Route: 048
  17. ASPIRIN [Concomitant]
     Active Substance: ASPIRIN
     Indication: Thrombosis prophylaxis
     Route: 048
  18. AMLODIPINE [Concomitant]
     Active Substance: AMLODIPINE BESYLATE
     Indication: Hypertension
     Route: 048
     Dates: start: 20220628
  19. FUROSEMIDE [Concomitant]
     Active Substance: FUROSEMIDE
     Indication: Hypertension
     Route: 048
     Dates: start: 20220614, end: 20220627
  20. FUROSEMIDE [Concomitant]
     Active Substance: FUROSEMIDE
     Indication: Oedema peripheral
     Dosage: 1/2 (UNIT NOT PROVIDED)
     Route: 048
     Dates: start: 20220628, end: 20220905
  21. DAPSONE [Concomitant]
     Active Substance: DAPSONE
     Indication: Antibiotic prophylaxis
     Route: 048
     Dates: start: 20220426
  22. OXYGEN [Concomitant]
     Active Substance: OXYGEN
     Indication: COVID-19 pneumonia
     Dosage: 2 (NO UNIT REPORTED)
     Route: 055
     Dates: start: 20220608
  23. OXYGEN [Concomitant]
     Active Substance: OXYGEN
     Indication: COVID-19 pneumonia
     Dosage: 15 (UNIT NOT PROVIDED)
     Route: 055
     Dates: start: 20220523, end: 20220606
  24. CODEINE PHOSPHATE [Concomitant]
     Active Substance: CODEINE PHOSPHATE
     Indication: COVID-19 pneumonia
     Dosage: 28.7 (UNIT NOT PROVIDED)
     Route: 048
     Dates: start: 20220529, end: 20220529
  25. REMDESIVIR [Concomitant]
     Active Substance: REMDESIVIR
     Indication: COVID-19 pneumonia
     Dosage: 100 (UNIT NOT PROVIDED)
     Route: 042
     Dates: start: 20220601, end: 20220605
  26. METHYLPREDNISOLONE [Concomitant]
     Active Substance: METHYLPREDNISOLONE
     Indication: COVID-19 pneumonia
     Dosage: 40 (UNIT NOT PROVIDED)
     Route: 048
     Dates: start: 20220602, end: 20220606
  27. OXYGEN [Concomitant]
     Active Substance: OXYGEN
     Indication: COVID-19 pneumonia
     Dosage: 4 (UNIT NOT PROVIDED)
     Route: 055
     Dates: start: 20220606, end: 20220607
  28. HEPATITIS B VIRUS VACCINE [Concomitant]
     Active Substance: HEPATITIS B VIRUS VACCINE
     Indication: Prophylaxis
     Dosage: 1 (UNIT NOT PROVIDED)
     Route: 065
     Dates: start: 20220726, end: 20220726
  29. PNEUMOVAX 23 [Concomitant]
     Active Substance: PNEUMOCOCCAL VACCINE, POLYVALENT 23
     Indication: Prophylaxis
     Dosage: 1 (UNIT NOT PROVIDED)
     Route: 065
     Dates: start: 20220726, end: 20220726
  30. IMMUNOGLOBULINS [Concomitant]
     Indication: Hypogammaglobulinaemia
     Route: 042
     Dates: start: 20220606, end: 20220606

REACTIONS (1)
  - Febrile neutropenia [Recovered/Resolved]

NARRATIVE: CASE EVENT DATE: 20220628
